FAERS Safety Report 18209050 (Version 4)
Quarter: 2022Q4

REPORT INFORMATION
  Report Type: Spontaneous
  Country: US (occurrence: US)
  Receive Date: 20200828
  Receipt Date: 20221128
  Transmission Date: 20230113
  Serious: Yes (Other)
  Sender: FDA-Public Use
  Company Number: US-PFIZER INC-2020331988

PATIENT
  Age: 68 Year
  Sex: Female
  Weight: 58.97 kg

DRUGS (5)
  1. CYTOMEL [Suspect]
     Active Substance: LIOTHYRONINE SODIUM
     Indication: Tri-iodothyronine decreased
     Dosage: 7.5 UG, DAILY (5 UG ONE AND ONE HALF DAILY)
     Route: 048
  2. CYTOMEL [Suspect]
     Active Substance: LIOTHYRONINE SODIUM
     Indication: Thyroidectomy
     Dosage: 7.5 UG, ALTERNATE DAY
     Dates: start: 20221004
  3. CYTOMEL [Suspect]
     Active Substance: LIOTHYRONINE SODIUM
     Dosage: 5 UG, ALTERNATE DAY
     Dates: start: 20221004
  4. LEVOTHYROXINE [Concomitant]
     Active Substance: LEVOTHYROXINE
     Indication: Hormone replacement therapy
     Dosage: UNK (104 MCG /DAY. ON TWO DAYS SHE TAKES 100 MCG, THEN TUESDAY 112 MCG AND THEN ROTATES THE CYCLE)
  5. LEVOTHYROXINE [Concomitant]
     Active Substance: LEVOTHYROXINE
     Indication: Thyroidectomy
     Dosage: 2 DAYS 100; 112MCG EQUIV 104 MCG PER DAY

REACTIONS (13)
  - Sepsis [Unknown]
  - Hyperthyroidism [Unknown]
  - Drug dependence [Unknown]
  - Inflammation [Unknown]
  - Dizziness [Not Recovered/Not Resolved]
  - Urine odour abnormal [Unknown]
  - Palpitations [Recovered/Resolved]
  - Malaise [Unknown]
  - Balance disorder [Unknown]
  - Tension [Unknown]
  - Dehydration [Unknown]
  - Product dose omission issue [Not Recovered/Not Resolved]
  - Overdose [Not Recovered/Not Resolved]

NARRATIVE: CASE EVENT DATE: 20221109
